FAERS Safety Report 5663821-3 (Version None)
Quarter: 2008Q1

REPORT INFORMATION
  Report Type: 
  Country: None (occurrence: None)
  Receive Date: 20080307
  Receipt Date: 20080214
  Transmission Date: 20080703
  Serious: Yes (Other)
  Sender: FDA-Public Use
  Company Number: RB-9396-2008

PATIENT
  Age: 74 Year
  Sex: Male

DRUGS (11)
  1. TEMGESIC (BUPRENORPHINE HYDROCHLORIDE) [Suspect]
     Indication: PAIN
     Dosage: SUBCUTANEOUS
     Route: 058
     Dates: start: 20080104, end: 20080114
  2. CETIRIZINE HCL [Concomitant]
  3. CLOPIDOGREL [Concomitant]
  4. FUROSEMIDE [Concomitant]
  5. GABAPENTIN [Concomitant]
  6. IBUPROFEN [Concomitant]
  7. LOSARTAN POTASSIUM [Concomitant]
  8. MOMETASONE (MOMETASONE) [Concomitant]
  9. ACETAMINOPHEN [Concomitant]
  10. SIMVASTATIN [Concomitant]
  11. TAMSULOSIN HCL [Concomitant]

REACTIONS (2)
  - SWOLLEN TONGUE [None]
  - TONGUE HAEMORRHAGE [None]
